FAERS Safety Report 22318341 (Version 3)
Quarter: 2023Q2

REPORT INFORMATION
  Report Type: Spontaneous
  Country: US (occurrence: US)
  Receive Date: 20230515
  Receipt Date: 20230627
  Transmission Date: 20230721
  Serious: No
  Sender: FDA-Public Use
  Company Number: US-AMGEN-USASP2023082446

PATIENT
  Age: 77 Year
  Sex: Female

DRUGS (2)
  1. TAVNEOS [Suspect]
     Active Substance: AVACOPAN
     Indication: Granulomatosis with polyangiitis
     Dosage: 30 MILLIGRAM, BID, WITH FOOD
     Route: 048
     Dates: start: 20230404
  2. TAVNEOS [Suspect]
     Active Substance: AVACOPAN
     Dosage: 30 MILLIGRAM, BID, WITH FOOD
     Route: 048
     Dates: start: 20230413

REACTIONS (4)
  - Red blood cell sedimentation rate increased [Unknown]
  - C-reactive protein increased [Unknown]
  - Dizziness [Unknown]
  - Balance disorder [Unknown]

NARRATIVE: CASE EVENT DATE: 20230101
